FAERS Safety Report 12849852 (Version 5)
Quarter: 2019Q3

REPORT INFORMATION
  Report Type: Spontaneous
  Country: US (occurrence: US)
  Receive Date: 20161014
  Receipt Date: 20190916
  Transmission Date: 20191004
  Serious: Yes (Other)
  Sender: FDA-Public Use
  Company Number: US-ROCHE-1811047

PATIENT
  Sex: Female

DRUGS (11)
  1. OMEPRAZOLE. [Concomitant]
     Active Substance: OMEPRAZOLE
  2. ESBRIET [Suspect]
     Active Substance: PIRFENIDONE
     Route: 048
  3. XANAX [Concomitant]
     Active Substance: ALPRAZOLAM
  4. XALATAN [Concomitant]
     Active Substance: LATANOPROST
  5. LEVOTHYROXINE. [Concomitant]
     Active Substance: LEVOTHYROXINE
  6. ESOMEPRAZOLE. [Concomitant]
     Active Substance: ESOMEPRAZOLE MAGNESIUM
  7. FLONASE [Concomitant]
     Active Substance: FLUTICASONE PROPIONATE
  8. RESTORIL [Concomitant]
     Active Substance: TEMAZEPAM
  9. ALBUTEROL [SALBUTAMOL] [Concomitant]
     Active Substance: ALBUTEROL
  10. ESBRIET [Suspect]
     Active Substance: PIRFENIDONE
     Indication: IDIOPATHIC PULMONARY FIBROSIS
     Route: 048
     Dates: start: 20160618
  11. TRAZODONE [Concomitant]
     Active Substance: TRAZODONE HYDROCHLORIDE

REACTIONS (9)
  - Parosmia [Unknown]
  - Influenza [Unknown]
  - Sinusitis [Unknown]
  - Nausea [Unknown]
  - Upper respiratory tract infection [Unknown]
  - Anosmia [Unknown]
  - Ageusia [Unknown]
  - Viral infection [Unknown]
  - Bronchitis [Unknown]
